FAERS Safety Report 5653943-5 (Version None)
Quarter: 2008Q1

REPORT INFORMATION
  Report Type: 
  Country: None (occurrence: None)
  Receive Date: 20080206
  Receipt Date: 20071101
  Transmission Date: 20080703
  Serious: Yes (Life-Threatening, Hospitalization, Disabling)
  Sender: FDA-Public Use
  Company Number: US200710002721

PATIENT
  Age: 67 Year
  Sex: Female
  Weight: 65.8 kg

DRUGS (6)
  1. EVISTA [Suspect]
     Indication: OSTEOPOROSIS
     Dosage: 60 MG, ORAL
     Route: 048
     Dates: start: 20070522, end: 20070822
  2. ARTHROTEC [Concomitant]
  3. CALCIUM CARBONATE (CALCIUM CARBONATE UNKNOWN FORMULATION) [Concomitant]
  4. B12 (CYANOCOBALAMIN-TANNIN COMPLEX) [Concomitant]
  5. AMBIEN [Concomitant]
  6. REGLAN [Concomitant]

REACTIONS (2)
  - DEEP VEIN THROMBOSIS [None]
  - OEDEMA PERIPHERAL [None]
